FAERS Safety Report 16085381 (Version 1)
Quarter: 2019Q1

REPORT INFORMATION
  Report Type: Spontaneous
  Country: US (occurrence: US)
  Receive Date: 20190318
  Receipt Date: 20190318
  Transmission Date: 20190418
  Serious: Yes (Death)
  Sender: FDA-Public Use
  Company Number: US-CLINIGEN GROUP PLC/ CLINIGEN HEALTHCARE LTD-US-CLGN-19-00214

PATIENT
  Age: 26 Year
  Sex: Male

DRUGS (5)
  1. METHOTREXATE. [Suspect]
     Active Substance: METHOTREXATE
     Indication: OSTEOSARCOMA
  2. DOXORUBICIN [Suspect]
     Active Substance: DOXORUBICIN
     Indication: OSTEOSARCOMA
  3. CISPLATIN. [Suspect]
     Active Substance: CISPLATIN
     Indication: OSTEOSARCOMA
  4. IFOSFAMIDE. [Suspect]
     Active Substance: IFOSFAMIDE
  5. DEXRAZOXANE HCL [Suspect]
     Active Substance: DEXRAZOXANE HYDROCHLORIDE
     Indication: INFUSION SITE EXTRAVASATION

REACTIONS (1)
  - Osteosarcoma [Fatal]
